FAERS Safety Report 5903020-0 (Version None)
Quarter: 2008Q3

REPORT INFORMATION
  Report Type: 
  Country: None (occurrence: None)
  Receive Date: 20080930
  Receipt Date: 20080919
  Transmission Date: 20090109
  Serious: Yes (Hospitalization)
  Sender: FDA-Public Use
  Company Number: JP-AMGEN-US300869

PATIENT
  Sex: Female
  Weight: 60 kg

DRUGS (6)
  1. ENBREL [Suspect]
     Indication: RHEUMATOID ARTHRITIS
     Route: 058
     Dates: start: 20080621, end: 20080726
  2. METOLATE [Concomitant]
     Dates: start: 20071001
  3. VOLTAREN [Concomitant]
     Route: 048
  4. LANSOPRAZOLE [Concomitant]
     Route: 048
     Dates: start: 20071212
  5. PREDONINE [Concomitant]
     Route: 048
     Dates: start: 20070822
  6. AZULFIDINE EN-TABS [Concomitant]
     Route: 048
     Dates: start: 20070905

REACTIONS (4)
  - ENTEROCOLITIS [None]
  - FACE OEDEMA [None]
  - MALAISE [None]
  - OEDEMA PERIPHERAL [None]
